FAERS Safety Report 5092881-6 (Version None)
Quarter: 2006Q3

REPORT INFORMATION
  Report Type: 
  Country: None (occurrence: None)
  Receive Date: 20060828
  Receipt Date: 20060814
  Transmission Date: 20061208
  Serious: No
  Sender: FDA-Public Use
  Company Number: 2006-146736-NL

PATIENT
  Age: 62 Year
  Sex: Female

DRUGS (12)
  1. ROCURONIUM [Suspect]
     Indication: NEUROMUSCULAR BLOCKADE
     Dosage: 40 MG ONCE INTRAVENOUS (NOS)
     Route: 042
  2. AMIKACIN [Suspect]
     Dosage: INTRAVENOUS (NOS)
  3. PROPOFOL [Concomitant]
  4. SUFENTANIL CITRATE [Concomitant]
  5. KETAMINE HCL [Concomitant]
  6. BETABLOCKER [Concomitant]
  7. SARTAN [Concomitant]
  8. BETA-2 MIMETICS [Concomitant]
  9. CORTICOSTEROIDS [Concomitant]
  10. THEOPHYLLINE [Concomitant]
  11. PROPACETAMOL [Concomitant]
  12. TRAMADOL HCL [Concomitant]

REACTIONS (4)
  - INFECTION [None]
  - NEUROMUSCULAR BLOCK PROLONGED [None]
  - SCAR [None]
  - SURGICAL PROCEDURE REPEATED [None]
